FAERS Safety Report 5758593-8 (Version None)
Quarter: 2008Q2

REPORT INFORMATION
  Report Type: 
  Country: None (occurrence: None)
  Receive Date: 20080604
  Receipt Date: 20080530
  Transmission Date: 20081010
  Serious: Yes (Hospitalization)
  Sender: FDA-Public Use
  Company Number: B0519638A

PATIENT
  Age: 70 Year
  Sex: Female
  Weight: 69 kg

DRUGS (16)
  1. REQUIP [Suspect]
     Indication: PARKINSON'S DISEASE
     Route: 048
     Dates: start: 20080220, end: 20080504
  2. PRAMIPEXOLE DIHYDROCHLORIDE [Concomitant]
     Indication: PARKINSON'S DISEASE
     Route: 048
     Dates: end: 20080205
  3. PRAMIPEXOLE DIHYDROCHLORIDE [Concomitant]
     Dosage: .5MG TWICE PER DAY
     Route: 048
     Dates: start: 20080206, end: 20080212
  4. PRAMIPEXOLE DIHYDROCHLORIDE [Concomitant]
     Dosage: .5MG PER DAY
     Route: 048
     Dates: start: 20080213, end: 20080219
  5. SELEGILINE HCL [Concomitant]
     Indication: PARKINSON'S DISEASE
     Dosage: 2.5MG TWICE PER DAY
     Route: 048
  6. MADOPAR [Concomitant]
     Indication: PARKINSON'S DISEASE
     Dosage: 100MG THREE TIMES PER DAY
  7. ADALAT [Concomitant]
     Route: 048
  8. INDERAL [Concomitant]
     Route: 048
  9. CLARITIN [Concomitant]
     Route: 048
  10. CHINESE MEDICINE [Concomitant]
     Route: 048
  11. CHINESE MEDICINE [Concomitant]
     Route: 048
  12. TOLTERODINE TARTRATE [Concomitant]
     Route: 048
  13. PREMARIN [Concomitant]
     Route: 065
  14. MEDROXYPROGESTERONE ACETATE [Concomitant]
     Route: 048
  15. SEREVENT [Concomitant]
     Route: 048
  16. ZOVIRAX [Concomitant]
     Route: 048

REACTIONS (3)
  - NYSTAGMUS [None]
  - VERTIGO [None]
  - VOMITING [None]
